FAERS Safety Report 15745906 (Version 4)
Quarter: 2019Q3

REPORT INFORMATION
  Report Type: Report from Study
  Country: CA (occurrence: CA)
  Receive Date: 20181220
  Receipt Date: 20190702
  Transmission Date: 20191004
  Serious: Yes (Hospitalization)
  Sender: FDA-Public Use
  Company Number: CA-HLSUS-2018-CA-001913

PATIENT
  Age: 59 Year
  Sex: Female

DRUGS (1)
  1. CLOZARIL [Suspect]
     Active Substance: CLOZAPINE
     Route: 048
     Dates: start: 20050928

REACTIONS (4)
  - Leukopenia [Unknown]
  - Neutropenia [Unknown]
  - Non-Hodgkin^s lymphoma [Unknown]
  - Abscess [Unknown]

NARRATIVE: CASE EVENT DATE: 20190625
